FAERS Safety Report 14599838 (Version 1)
Quarter: 2018Q1

REPORT INFORMATION
  Report Type: Other
  Country: DK (occurrence: DK)
  Receive Date: 20180305
  Receipt Date: 20180305
  Transmission Date: 20180509
  Serious: Yes (Hospitalization)
  Sender: FDA-Public Use
  Company Number: DK-CELLTRION INC.-2018DK018217

PATIENT

DRUGS (4)
  1. EMTHEXATE                          /00113801/ [Concomitant]
     Active Substance: METHOTREXATE SODIUM
     Indication: ARTHRITIS
     Dosage: 10 TABL. EVERY THURSDAY,PHARMACEUTICAL DOSE FORM 245
     Route: 048
     Dates: start: 20130301
  2. REMSIMA [Suspect]
     Active Substance: INFLIXIMAB
     Indication: RHEUMATOID ARTHRITIS
     Dosage: 200 MG THURSDAY EVERY 8TH WEEK;PHARMACEUTICAL DOSE FORM 200
     Route: 042
  3. FOLIMET [Concomitant]
     Indication: FOLATE DEFICIENCY
     Dosage: TABLET AT 8:00 A.M. EVERY THURSDAY;PHARMACEUTICAL DOSE FORM 245
     Route: 048
     Dates: start: 20110606
  4. AVAMYS [Concomitant]
     Active Substance: FLUTICASONE FUROATE
     Indication: RHINITIS ALLERGIC
     Dosage: 2 PUFFS 1 X PER DAY IN EACH NOSTRIL PHARMACEUTICAL DOSE FORM 146
     Route: 045
     Dates: start: 20170531

REACTIONS (2)
  - Intestinal resection [Recovered/Resolved]
  - Adenocarcinoma of colon [Recovered/Resolved]

NARRATIVE: CASE EVENT DATE: 2017
